FAERS Safety Report 23517642 (Version 5)
Quarter: 2024Q1

REPORT INFORMATION
  Report Type: Spontaneous
  Country: JP (occurrence: JP)
  Receive Date: 20240213
  Receipt Date: 20240329
  Transmission Date: 20240410
  Serious: Yes (Hospitalization, Other)
  Sender: FDA-Public Use
  Company Number: JP-UNITED THERAPEUTICS-UNT-2023-012327

PATIENT
  Age: 3 Year
  Sex: Male
  Weight: 17.2 kg

DRUGS (18)
  1. UNITUXIN [Suspect]
     Active Substance: DINUTUXIMAB
     Indication: Neuroblastoma
     Dosage: 17.5 MG/M2, CYCLICAL (CYCLE 1)
     Route: 041
     Dates: start: 20230425, end: 20230428
  2. UNITUXIN [Suspect]
     Active Substance: DINUTUXIMAB
     Dosage: 17.5 MG/M2, CYCLICAL (CYCLE 2)
     Route: 041
     Dates: start: 20230530, end: 20230602
  3. UNITUXIN [Suspect]
     Active Substance: DINUTUXIMAB
     Dosage: 17.5 MG/M2, CYCLICAL (CYCLE 3)
     Route: 041
     Dates: start: 20230626, end: 20230629
  4. UNITUXIN [Suspect]
     Active Substance: DINUTUXIMAB
     Dosage: 17.5 MG/M2, CYCLICAL (CYCLE 4)
     Route: 041
     Dates: start: 20230801, end: 20230804
  5. UNITUXIN [Suspect]
     Active Substance: DINUTUXIMAB
     Dosage: 17.5 MG/M2, CYCLICAL (CYCLE 5)
     Route: 041
     Dates: start: 20230828, end: 20230831
  6. UNITUXIN [Suspect]
     Active Substance: DINUTUXIMAB
     Dosage: 17.5 MG/M2, CYCLICAL (CYCLE 6)
     Route: 041
     Dates: start: 20231003, end: 20231006
  7. FILGRASTIM [Suspect]
     Active Substance: FILGRASTIM
     Indication: Neuroblastoma
     Dosage: 5 ?G/KG, QD (CYCLE 1)
     Route: 041
     Dates: start: 20230422, end: 20230425
  8. FILGRASTIM [Suspect]
     Active Substance: FILGRASTIM
     Dosage: 5 ?G/KG, QD (CYCLE 3)
     Route: 041
     Dates: start: 20230623, end: 20230706
  9. FILGRASTIM [Suspect]
     Active Substance: FILGRASTIM
     Dosage: 5 ?G/KG, QD (CYCLE 5)
     Route: 041
     Dates: start: 20230825, end: 20230907
  10. TECELEUKIN [Suspect]
     Active Substance: TECELEUKIN
     Indication: Neuroblastoma
     Dosage: 750,000 UNITS/M2, QD (CYCLE 2)
     Route: 065
     Dates: start: 20230523, end: 20230602
  11. TECELEUKIN [Suspect]
     Active Substance: TECELEUKIN
     Dosage: 750,000 UNITS/M2, QD (CYCLE 4)
     Route: 065
     Dates: start: 20230725, end: 20230728
  12. TECELEUKIN [Suspect]
     Active Substance: TECELEUKIN
     Dosage: 750,000 UNITS/M2, QD (CYCLE 6)
     Route: 065
     Dates: start: 20230926, end: 20230929
  13. MORPHINE [Concomitant]
     Active Substance: MORPHINE
     Indication: Prophylaxis
     Dosage: UNK
     Route: 065
     Dates: start: 20230425, end: 20230429
  14. MORPHINE [Concomitant]
     Active Substance: MORPHINE
     Dosage: UNK
     Route: 065
     Dates: start: 20230530, end: 20230603
  15. MORPHINE [Concomitant]
     Active Substance: MORPHINE
     Dosage: UNK
     Route: 065
     Dates: start: 20230626, end: 20230630
  16. MORPHINE [Concomitant]
     Active Substance: MORPHINE
     Dosage: UNK
     Route: 065
     Dates: start: 20230801, end: 20230805
  17. MORPHINE [Concomitant]
     Active Substance: MORPHINE
     Dosage: UNK
     Route: 065
     Dates: start: 20230828, end: 20230901
  18. MORPHINE [Concomitant]
     Active Substance: MORPHINE
     Dosage: UNK
     Route: 065
     Dates: start: 20231003, end: 20231007

REACTIONS (11)
  - Pulmonary oedema [Unknown]
  - Capillary leak syndrome [Unknown]
  - Pyrexia [Recovered/Resolved]
  - Pain [Unknown]
  - Pyrexia [Recovered/Resolved]
  - Pyrexia [Recovered/Resolved]
  - Pyrexia [Recovered/Resolved]
  - Pyrexia [Recovered/Resolved]
  - Pyrexia [Recovered/Resolved]
  - Malaise [Recovering/Resolving]
  - Hypoalbuminaemia [Recovered/Resolved]

NARRATIVE: CASE EVENT DATE: 20230425
